FAERS Safety Report 7026292-0 (Version None)
Quarter: 2010Q4

REPORT INFORMATION
  Report Type: 
  Country: None (occurrence: None)
  Receive Date: 20101004
  Receipt Date: 20100929
  Transmission Date: 20110411
  Serious: Yes (Other)
  Sender: FDA-Public Use
  Company Number: US-PFIZER INC-2010123776

PATIENT
  Sex: Female

DRUGS (1)
  1. FLAGYL [Suspect]

REACTIONS (2)
  - CONVULSION [None]
  - HYPERSENSITIVITY [None]
